FAERS Safety Report 6267352-1 (Version None)
Quarter: 2009Q3

REPORT INFORMATION
  Report Type: 
  Country: None (occurrence: None)
  Receive Date: 20090714
  Receipt Date: 20090706
  Transmission Date: 20100115
  Serious: Yes (Other)
  Sender: FDA-Public Use
  Company Number: B0556905A

PATIENT
  Sex: Male
  Weight: 29 kg

DRUGS (5)
  1. RELENZA [Suspect]
     Indication: INFLUENZA
     Dosage: 10MG TWICE PER DAY
     Route: 055
     Dates: start: 20090122
  2. ONON [Concomitant]
     Indication: ASTHMA
     Dosage: 2.01G PER DAY
     Route: 048
     Dates: start: 20090122, end: 20090204
  3. CLARITIN REDITABS [Concomitant]
     Dosage: 1U PER DAY
     Route: 048
     Dates: start: 20090122, end: 20090204
  4. BIOFERMIN [Concomitant]
     Indication: GASTROENTERITIS
     Dosage: 1.98G PER DAY
     Route: 048
     Dates: start: 20090122, end: 20090128
  5. KLARICID [Concomitant]
     Indication: BRONCHITIS
     Dosage: 2.88G PER DAY
     Route: 048
     Dates: start: 20090122, end: 20090128

REACTIONS (7)
  - ABNORMAL BEHAVIOUR [None]
  - ASTHMA [None]
  - DELIRIUM [None]
  - DYSPNOEA [None]
  - HALLUCINATION, VISUAL [None]
  - HYPERTHERMIA [None]
  - SCREAMING [None]
